FAERS Safety Report 4618527-6 (Version None)
Quarter: 2005Q1

REPORT INFORMATION
  Report Type: 
  Country: None (occurrence: None)
  Receive Date: 20050323
  Receipt Date: 20050307
  Transmission Date: 20050727
  Serious: Yes (Death)
  Sender: FDA-Public Use
  Company Number: 20050100016

PATIENT
  Age: 73 Year
  Sex: Male

DRUGS (4)
  1. ATIVAN [Suspect]
     Indication: AGITATION
     Dosage: 1 MG IM
     Route: 030
     Dates: start: 20030509, end: 20030501
  2. OMEPRAZOLE [Concomitant]
  3. SIMVASTATIN [Concomitant]
  4. VENTOLIN                 (GUAIFENESIN/SALBUTAMOL) [Concomitant]

REACTIONS (10)
  - AGITATION [None]
  - ARRHYTHMIA [None]
  - CARDIAC DISORDER [None]
  - CHRONIC OBSTRUCTIVE PULMONARY DISEASE [None]
  - CIRCULATORY COLLAPSE [None]
  - CONDITION AGGRAVATED [None]
  - HEART RATE IRREGULAR [None]
  - MYOCARDIAL INFARCTION [None]
  - REFUSAL OF TREATMENT BY PATIENT [None]
  - RESPIRATORY FAILURE [None]
